FAERS Safety Report 14821991 (Version 1)
Quarter: 2018Q2

REPORT INFORMATION
  Report Type: Spontaneous
  Country: US (occurrence: US)
  Receive Date: 20180427
  Receipt Date: 20180427
  Transmission Date: 20180711
  Serious: Yes (Other)
  Sender: FDA-Public Use
  Company Number: US-PFIZER INC-2018159174

PATIENT
  Age: 62 Year
  Sex: Male

DRUGS (3)
  1. PHENYTOIN. [Suspect]
     Active Substance: PHENYTOIN
     Indication: SEIZURE
     Dosage: 300 MG, UNK
  2. WARFARIN [Concomitant]
     Active Substance: WARFARIN
     Dosage: 4 MG, UNK
  3. OXYCODONE [Interacting]
     Active Substance: OXYCODONE
     Indication: PAIN
     Dosage: 20 MG, UNK

REACTIONS (4)
  - Drug interaction [Not Recovered/Not Resolved]
  - Bradycardia [Not Recovered/Not Resolved]
  - Toxicity to various agents [Unknown]
  - Abdominal pain upper [Recovered/Resolved]
